FAERS Safety Report 5386744-6 (Version None)
Quarter: 2007Q3

REPORT INFORMATION
  Report Type: 
  Country: None (occurrence: None)
  Receive Date: 20070713
  Receipt Date: 20070703
  Transmission Date: 20080115
  Serious: Yes (Hospitalization)
  Sender: FDA-Public Use
  Company Number: US-PFIZER INC-2007017271

PATIENT
  Sex: Female
  Weight: 75.8 kg

DRUGS (9)
  1. SUTENT [Suspect]
     Indication: ANGIOSARCOMA
     Route: 048
     Dates: start: 20050707, end: 20061103
  2. SUTENT [Suspect]
     Route: 048
     Dates: start: 20061119, end: 20070110
  3. SUTENT [Suspect]
     Route: 048
     Dates: start: 20070201, end: 20070219
  4. IBUPROFEN [Concomitant]
     Route: 048
  5. ATENOLOL [Concomitant]
     Route: 048
  6. KYTRIL [Concomitant]
     Route: 048
  7. NEXIUM [Concomitant]
     Route: 048
  8. SYNTHROID [Concomitant]
     Route: 048
  9. PAXIL [Concomitant]
     Route: 048

REACTIONS (2)
  - ALTERED STATE OF CONSCIOUSNESS [None]
  - HYPOGLYCAEMIA [None]
